FAERS Safety Report 24250750 (Version 1)
Quarter: 2024Q3

REPORT INFORMATION
  Report Type: Spontaneous
  Country: US (occurrence: US)
  Receive Date: 20240826
  Receipt Date: 20240826
  Transmission Date: 20241017
  Serious: No
  Sender: MEDEXUS PHARMA
  Company Number: US-MEDEXUS PHARMA, INC.-2023MED00365

PATIENT
  Age: 68 Year
  Sex: Female

DRUGS (1)
  1. RASUVO [Suspect]
     Active Substance: METHOTREXATE SODIUM
     Dosage: UNK INJECTED IN RIGHT LEG
     Dates: start: 20230902

REACTIONS (4)
  - Injection site haemorrhage [Unknown]
  - Exposure via skin contact [Recovered/Resolved]
  - Device deployment issue [Recovered/Resolved]
  - Device defective [Recovered/Resolved]

NARRATIVE: CASE EVENT DATE: 20230901
